FAERS Safety Report 19707991 (Version 2)
Quarter: 2021Q3

REPORT INFORMATION
  Report Type: Spontaneous
  Country: JP (occurrence: JP)
  Receive Date: 20210816
  Receipt Date: 20210920
  Transmission Date: 20211014
  Serious: Yes (Death, Hospitalization, Other)
  Sender: FDA-Public Use
  Company Number: JP-009507513-2108JPN000546J

PATIENT
  Age: 8 Decade
  Sex: Female

DRUGS (4)
  1. KEYTRUDA [Suspect]
     Active Substance: PEMBROLIZUMAB
     Indication: RENAL CELL CARCINOMA
     Dosage: 200 MILLIGRAM, EVERY 3 WEEKS
     Route: 041
     Dates: start: 20210610, end: 202106
  2. AXITINIB [Suspect]
     Active Substance: AXITINIB
     Indication: RENAL CELL CARCINOMA
     Dosage: 5 MILLIGRAM, TWICE A DAY
     Route: 048
     Dates: start: 20210610, end: 202106
  3. AXITINIB [Suspect]
     Active Substance: AXITINIB
     Dosage: 2 MILLIGRAM, TWICE A DAY
     Route: 048
     Dates: start: 202106, end: 202106
  4. AXITINIB [Suspect]
     Active Substance: AXITINIB
     Dosage: 2.5 MILLIGRAM, TWICE A DAY
     Route: 048
     Dates: start: 202106, end: 202106

REACTIONS (5)
  - Malignant neoplasm progression [Fatal]
  - Hypertension [Recovering/Resolving]
  - Immune-mediated hypothyroidism [Unknown]
  - Adrenal disorder [Unknown]
  - Drug ineffective [Unknown]

NARRATIVE: CASE EVENT DATE: 202106
